FAERS Safety Report 24364605 (Version 1)
Quarter: 2024Q3

REPORT INFORMATION
  Report Type: Other
  Country: US (occurrence: US)
  Receive Date: 20240926
  Receipt Date: 20240926
  Transmission Date: 20241016
  Serious: Yes (Hospitalization, Other)
  Sender: WOODWARD PHARMA SERVICES
  Company Number: US-WW-2024-38883175

PATIENT
  Age: 77 Year
  Sex: Female

DRUGS (3)
  1. FLUCONAZOLE [Suspect]
     Active Substance: FLUCONAZOLE
     Indication: Otitis externa candida
  2. MEROPENEM [Suspect]
     Active Substance: MEROPENEM
     Indication: Otitis externa bacterial
  3. MEROPENEM [Suspect]
     Active Substance: MEROPENEM
     Indication: Otitis externa bacterial

REACTIONS (2)
  - Toxic epidermal necrolysis [Recovering/Resolving]
  - Multiple drug hypersensitivity [Recovering/Resolving]
